FAERS Safety Report 24814298 (Version 1)
Quarter: 2025Q1

REPORT INFORMATION
  Report Type: Spontaneous
  Country: US (occurrence: None)
  Receive Date: 20250106
  Receipt Date: 20250106
  Transmission Date: 20250409
  Serious: Yes (Death)
  Sender: FDA-CTU
  Company Number: None

PATIENT
  Sex: Female

DRUGS (4)
  1. TOLVAPTAN [Suspect]
     Active Substance: TOLVAPTAN
     Indication: Hypoosmolar state
     Dosage: FREQUENCY : DAILY;?
     Route: 048
     Dates: start: 20241109
  2. TOLVAPTAN [Suspect]
     Active Substance: TOLVAPTAN
     Indication: Hyponatraemia
  3. ELIQUIS [Concomitant]
     Active Substance: APIXABAN
  4. NIVESTYM [Concomitant]
     Active Substance: FILGRASTIM-AAFI

REACTIONS (2)
  - Malaise [None]
  - Inappropriate schedule of product administration [None]
